FAERS Safety Report 10144000 (Version 1)
Quarter: 2014Q2

REPORT INFORMATION
  Report Type: Spontaneous
  Country: JP (occurrence: JP)
  Receive Date: 20140430
  Receipt Date: 20140430
  Transmission Date: 20141212
  Serious: Yes (Hospitalization)
  Sender: FDA-Public Use
  Company Number: JP-BRISTOL-MYERS SQUIBB COMPANY-20681110

PATIENT
  Age: 4 Decade
  Sex: Male

DRUGS (4)
  1. ERBITUX SOLN FOR INF 5MG/ML [Suspect]
     Indication: COLON CANCER
     Route: 041
     Dates: start: 20140401
  2. 5-FU [Suspect]
     Indication: COLON CANCER
     Route: 041
  3. LEUCOVORIN [Suspect]
     Indication: COLON CANCER
     Route: 041
  4. IRINOTECAN [Suspect]
     Indication: COLON CANCER
     Route: 041

REACTIONS (1)
  - Purpura [Recovering/Resolving]
